FAERS Safety Report 4645395-9 (Version None)
Quarter: 2005Q2

REPORT INFORMATION
  Report Type: 
  Country: None (occurrence: None)
  Receive Date: 20050426
  Receipt Date: 20030411
  Transmission Date: 20051028
  Serious: Yes (Death, Other)
  Sender: FDA-Public Use
  Company Number: ES-AMGEN-US035492

PATIENT
  Sex: Male
  Weight: 82.5 kg

DRUGS (5)
  1. ETANERCEPT [Suspect]
     Indication: ANKYLOSING SPONDYLITIS
     Route: 058
     Dates: start: 20020424, end: 20030411
  2. LORAZEPAM [Concomitant]
     Dates: start: 20010101
  3. AMLODIPINE [Concomitant]
     Dates: start: 20021023
  4. ACETYL SALICYLIC ACID USP BAT [Concomitant]
     Dates: start: 20010101
  5. ATORVASTATIN CALCIUM [Concomitant]
     Dates: start: 20010101

REACTIONS (2)
  - METASTASES TO LIVER [None]
  - METASTATIC NEOPLASM [None]
